FAERS Safety Report 5928810-X (Version None)
Quarter: 2008Q4

REPORT INFORMATION
  Report Type: 
  Country: None (occurrence: None)
  Receive Date: 20081020
  Receipt Date: 20080508
  Transmission Date: 20090506
  Serious: Yes (Hospitalization)
  Sender: FDA-Public Use
  Company Number: CL001002008

PATIENT
  Age: 50 Year
  Sex: Female

DRUGS (3)
  1. CIPROFLOXACIN [Suspect]
     Indication: OSTEOMYELITIS
     Dosage: ORAL
     Route: 048
  2. CLINDAMYCIN HCL [Concomitant]
  3. FLOXACILLIN SODIUM [Concomitant]

REACTIONS (1)
  - TENDON RUPTURE [None]
